FAERS Safety Report 6208496-X (Version None)
Quarter: 2009Q2

REPORT INFORMATION
  Report Type: 
  Country: None (occurrence: None)
  Receive Date: 20090522
  Receipt Date: 20090216
  Transmission Date: 20091009
  Serious: No
  Sender: FDA-Public Use
  Company Number: 8043147

PATIENT
  Age: 34 Year
  Sex: Female
  Weight: 51.8 kg

DRUGS (7)
  1. CIMZIA [Suspect]
     Indication: CROHN'S DISEASE
     Dosage: 400 MG SC
     Route: 058
     Dates: start: 20090210
  2. CIPRO [Concomitant]
  3. FLAGYL [Concomitant]
  4. ZOFRAN [Concomitant]
  5. VITAMIN B-12 [Concomitant]
  6. TOPAMAX [Concomitant]
  7. NUVARING [Concomitant]

REACTIONS (1)
  - FATIGUE [None]
